FAERS Safety Report 16829558 (Version 1)
Quarter: 2019Q3

REPORT INFORMATION
  Report Type: Spontaneous
  Country: GB (occurrence: GB)
  Receive Date: 20190919
  Receipt Date: 20190919
  Transmission Date: 20191005
  Serious: Yes (Other)
  Sender: FDA-Public Use
  Company Number: GB-JNJFOC-20190921668

PATIENT
  Age: 21 Year
  Sex: Female
  Weight: 87 kg

DRUGS (7)
  1. AMOXICILLIN. [Concomitant]
     Active Substance: AMOXICILLIN
     Route: 065
     Dates: start: 20190606, end: 20190613
  2. SERTRALINE [Concomitant]
     Active Substance: SERTRALINE HYDROCHLORIDE
     Route: 065
     Dates: start: 20190612
  3. CANDESARTAN. [Concomitant]
     Active Substance: CANDESARTAN
     Indication: PRODUCT USED FOR UNKNOWN INDICATION
     Route: 065
     Dates: start: 20190717, end: 20190814
  4. ANUSOL                             /00117301/ [Concomitant]
     Active Substance: BALSAM PERU\BISMUTH HYDROXIDE\BISMUTH SUBGALLATE\BORIC ACID\ZINC OXIDE
     Dosage: APPLY AS NEEDED; AS REQUIRED
     Route: 065
     Dates: start: 20190626, end: 20190710
  5. TOPAMAX [Suspect]
     Active Substance: TOPIRAMATE
     Indication: PRODUCT USED FOR UNKNOWN INDICATION
     Route: 048
     Dates: start: 20170810
  6. DOXYCYCLINE. [Concomitant]
     Active Substance: DOXYCYCLINE
     Dosage: TWO NOW THEN ONE DAILY
     Route: 065
     Dates: start: 20190626, end: 20190703
  7. MACROGOL [Concomitant]
     Active Substance: POLYETHYLENE GLYCOLS
     Dosage: USE AS DIRECTED
     Route: 065
     Dates: start: 20190626, end: 20190710

REACTIONS (2)
  - Nausea [Recovered/Resolved]
  - Vomiting [Recovered/Resolved]

NARRATIVE: CASE EVENT DATE: 20170810
